FAERS Safety Report 13891744 (Version 3)
Quarter: 2018Q1

REPORT INFORMATION
  Report Type: Report from Study
  Country: GB (occurrence: GB)
  Receive Date: 20170822
  Receipt Date: 20180123
  Transmission Date: 20180508
  Serious: Yes (Hospitalization)
  Sender: FDA-Public Use
  Company Number: PHHY2017GB121942

PATIENT
  Age: 77 Year
  Sex: Male
  Weight: 96.2 kg

DRUGS (1)
  1. ENTRESTO [Suspect]
     Active Substance: SACUBITRIL\VALSARTAN
     Indication: LEFT VENTRICULAR DYSFUNCTION
     Dosage: 100 MG, BID
     Route: 048

REACTIONS (5)
  - Renal impairment [Not Recovered/Not Resolved]
  - Cellulitis [Unknown]
  - Ejection fraction decreased [Unknown]
  - Infected skin ulcer [Unknown]
  - Acute kidney injury [Unknown]

NARRATIVE: CASE EVENT DATE: 20170804
